FAERS Safety Report 8343157-2 (Version None)
Quarter: 2012Q2

REPORT INFORMATION
  Report Type: 
  Country: None (occurrence: None)
  Receive Date: 20120508
  Receipt Date: 20120503
  Transmission Date: 20120825
  Serious: Yes (Hospitalization)
  Sender: FDA-Public Use
  Company Number: SE-PFIZER INC-2012108313

PATIENT
  Age: 56 Year
  Sex: Female

DRUGS (9)
  1. SUTENT [Suspect]
     Indication: RENAL CANCER METASTATIC
     Dosage: 50 MG, UNK
     Route: 048
     Dates: start: 20110905, end: 20120317
  2. ALVEDON [Concomitant]
     Dosage: 665 MG, UNK
  3. VALPROIC ACID [Concomitant]
     Dosage: 300 MG, UNK
  4. ATENOLOL [Concomitant]
     Dosage: UNK
  5. LOSARTAN POTASSIUM AND HYDROCHLOROTHIAZIDE [Concomitant]
     Dosage: UNK
  6. SYMBICORT [Concomitant]
     Dosage: UNK
  7. KEPPRA [Concomitant]
     Dosage: 500 MG, UNK
  8. OMEPRAZOLE [Concomitant]
     Dosage: UNK
  9. SPIRIVA [Concomitant]
     Dosage: 18 UG, UNK

REACTIONS (5)
  - MELAENA [None]
  - ANAL ABSCESS [None]
  - GASTRITIS [None]
  - PETECHIAE [None]
  - HYPERVENTILATION [None]
